FAERS Safety Report 9402674 (Version 2)
Quarter: 2013Q4

REPORT INFORMATION
  Report Type: Spontaneous
  Country: IE (occurrence: IE)
  Receive Date: 20130716
  Receipt Date: 20131003
  Transmission Date: 20140711
  Serious: Yes (Death, Hospitalization, Other)
  Sender: FDA-Public Use
  Company Number: IE-AMGEN-IRLSP2013030044

PATIENT
  Age: 65 Year
  Sex: Female
  Weight: 46 kg

DRUGS (4)
  1. XGEVA [Suspect]
     Indication: HYPERCALCAEMIA
     Dosage: 120 MG, QMO
     Route: 058
     Dates: start: 201304, end: 201305
  2. BEVACIZUMAB [Concomitant]
     Indication: CHEMOTHERAPY
     Dosage: 475 MG, 2/52
     Route: 042
     Dates: start: 201304, end: 201305
  3. PACLITAXEL [Concomitant]
     Indication: CHEMOTHERAPY
     Dosage: 114 MG, QWK
     Route: 042
     Dates: start: 201304, end: 201305
  4. CARBOPLATIN [Concomitant]

REACTIONS (6)
  - Metastatic neoplasm [Fatal]
  - Hypocalcaemia [Recovered/Resolved]
  - Electrolyte imbalance [Unknown]
  - Dehydration [Unknown]
  - Hypophagia [Unknown]
  - Blood phosphorus abnormal [Unknown]
